FAERS Safety Report 7670169-4 (Version None)
Quarter: 2011Q3

REPORT INFORMATION
  Report Type: 
  Country: None (occurrence: None)
  Receive Date: 20110808
  Receipt Date: 20110802
  Transmission Date: 20111222
  Serious: Yes (Other)
  Sender: FDA-Public Use
  Company Number: CA-ROXANE LABORATORIES, INC.-2011-RO-01095RO

PATIENT
  Age: 66 Year
  Sex: Female

DRUGS (4)
  1. MYCOPHENOLATE MOFETIL [Suspect]
     Indication: IMMUNOSUPPRESSION
  2. PREDNISONE [Suspect]
     Indication: IMMUNOSUPPRESSION
  3. TACROLIMUS [Suspect]
     Indication: IMMUNOSUPPRESSION
  4. GANCICLOVIR [Concomitant]
     Indication: ANTIVIRAL PROPHYLAXIS

REACTIONS (5)
  - SEPSIS [None]
  - LIVER TRANSPLANT REJECTION [None]
  - VENA CAVA THROMBOSIS [None]
  - HEPATITIS C [None]
  - DIABETES MELLITUS [None]
